FAERS Safety Report 14368791 (Version 1)
Quarter: 2018Q1

REPORT INFORMATION
  Report Type: Spontaneous
  Country: US (occurrence: US)
  Receive Date: 20180109
  Receipt Date: 20180109
  Transmission Date: 20180509
  Serious: No
  Sender: FDA-Public Use
  Company Number: US-PFIZER INC-2018003020

PATIENT
  Age: 6 Year
  Sex: Female
  Weight: 19.96 kg

DRUGS (3)
  1. SUCRAID [Concomitant]
     Active Substance: SACROSIDASE
     Indication: ENZYME ABNORMALITY
     Dosage: 2 ML, UNK (ANY TIME SHE EATS OR DRINKS ANYTHING WITH SUGAR)
     Route: 048
     Dates: start: 201308
  2. QUILLIVANT XR [Suspect]
     Active Substance: METHYLPHENIDATE HYDROCHLORIDE
     Dosage: 5 ML, 1X/DAY
     Route: 048
     Dates: start: 201710
  3. QUILLIVANT XR [Suspect]
     Active Substance: METHYLPHENIDATE HYDROCHLORIDE
     Indication: ATTENTION DEFICIT/HYPERACTIVITY DISORDER
     Dosage: 4 ML, 1X/DAY
     Route: 048
     Dates: start: 201702, end: 2017

REACTIONS (2)
  - Product use issue [Not Recovered/Not Resolved]
  - Weight increased [Recovering/Resolving]

NARRATIVE: CASE EVENT DATE: 201702
